FAERS Safety Report 23853810 (Version 2)
Quarter: 2024Q2

REPORT INFORMATION
  Report Type: Spontaneous
  Country: US (occurrence: US)
  Receive Date: 20240514
  Receipt Date: 20240624
  Transmission Date: 20240716
  Serious: No
  Sender: FDA-Public Use
  Company Number: US-VERTEX PHARMACEUTICALS-2024-007954

PATIENT
  Age: 27 Year

DRUGS (1)
  1. TRIKAFTA [Suspect]
     Active Substance: ELEXACAFTOR\IVACAFTOR\TEZACAFTOR
     Indication: Cystic fibrosis
     Dosage: UNK
     Route: 048

REACTIONS (9)
  - Cough [Unknown]
  - Illness [Unknown]
  - Infection [Unknown]
  - Back pain [Unknown]
  - Pneumonitis [Unknown]
  - Abscess [Unknown]
  - Aspergillus infection [Unknown]
  - Obstructive airways disorder [Unknown]
  - Asthma [Unknown]
